FAERS Safety Report 4647014-4 (Version None)
Quarter: 2005Q2

REPORT INFORMATION
  Report Type: 
  Country: None (occurrence: None)
  Receive Date: 20050331
  Receipt Date: 20050207
  Transmission Date: 20051028
  Serious: No
  Sender: FDA-Public Use
  Company Number: 05P-163-0289695

PATIENT
  Age: 71 Year
  Sex: Female
  Weight: 61.2356 kg

DRUGS (6)
  1. HUMIRA [Suspect]
     Indication: RHEUMATOID ARTHRITIS
     Dosage: 40 MG, 1 IN 2 WK, SUBCUTANEOUS
     Route: 058
     Dates: start: 20050114
  2. PREDNISONE [Concomitant]
  3. FOLIC ACID [Concomitant]
  4. ASPIRIN [Concomitant]
  5. CALCIUM GLUCONATE [Concomitant]
  6. MULTI-VITAMINS [Concomitant]

REACTIONS (4)
  - HYPOAESTHESIA [None]
  - NODULE [None]
  - PAIN IN EXTREMITY [None]
  - PARAESTHESIA [None]
